FAERS Safety Report 13283999 (Version 2)
Quarter: 2017Q3

REPORT INFORMATION
  Report Type: Spontaneous
  Country: US (occurrence: US)
  Receive Date: 20170301
  Receipt Date: 20170721
  Transmission Date: 20171127
  Serious: Yes (Other)
  Sender: FDA-Public Use
  Company Number: US-GLAXOSMITHKLINE-US2017028268

PATIENT
  Age: 78 Year
  Sex: Male

DRUGS (1)
  1. ADVAIR HFA [Suspect]
     Active Substance: FLUTICASONE PROPIONATE\SALMETEROL XINAFOATE
     Indication: CHRONIC OBSTRUCTIVE PULMONARY DISEASE
     Dosage: 1 PUFF(S), BID
     Route: 055
     Dates: start: 2003

REACTIONS (13)
  - Product cleaning inadequate [Unknown]
  - Tremor [Unknown]
  - Sputum discoloured [Unknown]
  - Drug dose omission [Unknown]
  - Pulmonary congestion [Unknown]
  - Parkinsonism [Unknown]
  - Nasopharyngitis [Unknown]
  - Underdose [Unknown]
  - Device use error [Unknown]
  - Product use in unapproved indication [Unknown]
  - Dyspnoea [Unknown]
  - Wrong technique in product usage process [Unknown]
  - Nasal congestion [Unknown]

NARRATIVE: CASE EVENT DATE: 201702
